FAERS Safety Report 8067361-6 (Version None)
Quarter: 2012Q1

REPORT INFORMATION
  Report Type: 
  Country: None (occurrence: None)
  Receive Date: 20120124
  Receipt Date: 20120120
  Transmission Date: 20120608
  Serious: Yes (Life-Threatening, Hospitalization)
  Sender: FDA-Public Use
  Company Number: FR-PFIZER INC-K201000323

PATIENT
  Age: 61 Year
  Sex: Male

DRUGS (13)
  1. ASPIRIN [Concomitant]
     Dosage: UNK
  2. CRESTOR [Concomitant]
     Dosage: UNK
  3. LASIX [Suspect]
     Indication: HYPERTENSION
     Dosage: 40 MG, 1X/DAY
     Route: 048
     Dates: end: 20090625
  4. PLAVIX [Concomitant]
     Dosage: UNK
  5. ZOLPIDEM [Concomitant]
     Dosage: UNK
  6. ALDACTONE [Suspect]
     Indication: HYPERTENSION
     Dosage: 25 MG, 1X/DAY
     Route: 048
     Dates: end: 20090625
  7. COLCHICINE [Suspect]
     Indication: BONE PAIN
     Dosage: UNK
     Dates: end: 20090625
  8. INSULIN [Concomitant]
     Dosage: UNK
  9. FONZYLANE [Concomitant]
     Dosage: UNK
  10. CARVEDILOL [Concomitant]
     Dosage: UNK
  11. RAMIPRIL [Suspect]
     Indication: HYPERTENSION
     Dosage: 10 MG, 1X/DAY
     Route: 048
     Dates: end: 20090625
  12. CORDARONE [Concomitant]
     Dosage: UNK
  13. NEXIUM [Concomitant]
     Dosage: UNK

REACTIONS (5)
  - DIARRHOEA [None]
  - DEHYDRATION [None]
  - VOMITING [None]
  - PERIARTICULAR DISORDER [None]
  - RENAL FAILURE ACUTE [None]
